FAERS Safety Report 17643486 (Version 4)
Quarter: 2021Q1

REPORT INFORMATION
  Report Type: Spontaneous
  Country: US (occurrence: US)
  Receive Date: 20200408
  Receipt Date: 20210210
  Transmission Date: 20210419
  Serious: Yes (Other)
  Sender: FDA-Public Use
  Company Number: US-ALLERGAN-2002516US

PATIENT
  Sex: Female

DRUGS (2)
  1. LILETTA [Suspect]
     Active Substance: LEVONORGESTREL
     Indication: CONTRACEPTION
     Dosage: 52 MG, SINGLE
     Route: 015
     Dates: start: 20190607, end: 20200117
  2. MULTIVITAMIN [Concomitant]
     Active Substance: VITAMINS

REACTIONS (10)
  - Dizziness [Unknown]
  - Complication of device removal [Unknown]
  - Pelvic pain [Unknown]
  - Pelvic inflammatory disease [Recovered/Resolved]
  - Oligomenorrhoea [Unknown]
  - Vaginal infection [Unknown]
  - Bacterial vaginosis [Recovered/Resolved]
  - Gait disturbance [Unknown]
  - Procedural pain [Unknown]
  - Device breakage [Unknown]

NARRATIVE: CASE EVENT DATE: 20190607
